FAERS Safety Report 7907099-6 (Version None)
Quarter: 2011Q4

REPORT INFORMATION
  Report Type: 
  Country: None (occurrence: None)
  Receive Date: 20111110
  Receipt Date: 20110623
  Transmission Date: 20120403
  Serious: No
  Sender: FDA-Public Use
  Company Number: US-ASTRAZENECA-2011SE38049

PATIENT
  Sex: Male

DRUGS (4)
  1. SIMVASTATIN [Suspect]
     Route: 065
  2. LOSARTAN [Suspect]
     Route: 065
  3. LISINOPRIL [Suspect]
     Route: 048
  4. AMLODIPINE [Suspect]
     Route: 065

REACTIONS (5)
  - PRURITUS [None]
  - MYALGIA [None]
  - RASH [None]
  - SNEEZING [None]
  - EYELID FUNCTION DISORDER [None]
